FAERS Safety Report 8136838-7 (Version None)
Quarter: 2012Q1

REPORT INFORMATION
  Report Type: 
  Country: None (occurrence: None)
  Receive Date: 20120214
  Receipt Date: 20120203
  Transmission Date: 20120608
  Serious: No
  Sender: FDA-Public Use
  Company Number: JP-ABBOTT-10P-087-0659254-00

PATIENT
  Sex: Male
  Weight: 54.5 kg

DRUGS (15)
  1. LOXOPROFEN SODIUM [Concomitant]
     Indication: PRODUCT USED FOR UNKNOWN INDICATION
     Route: 048
  2. ZOLPIDEM TARTRATE [Concomitant]
     Indication: PRODUCT USED FOR UNKNOWN INDICATION
     Route: 048
  3. FAMOTIDINE [Concomitant]
     Indication: PRODUCT USED FOR UNKNOWN INDICATION
  4. HUMIRA [Suspect]
     Dosage: DOSE ADJUSTED AS NEEDED
     Dates: start: 20100320, end: 20100513
  5. NIFEDIPINE [Concomitant]
     Indication: HYPERTENSION
     Route: 048
  6. TEPRENONE [Concomitant]
     Indication: PRODUCT USED FOR UNKNOWN INDICATION
     Route: 048
  7. HUMIRA [Suspect]
     Indication: PSORIATIC ARTHROPATHY
     Route: 058
     Dates: start: 20100308
  8. HUMIRA [Suspect]
     Dates: start: 20100430, end: 20100528
  9. INFLIXIMAB [Concomitant]
     Indication: PSORIATIC ARTHROPATHY
     Route: 042
     Dates: start: 20100702
  10. TORSEMIDE [Concomitant]
     Indication: RENAL IMPAIRMENT
     Route: 048
  11. EPINASTINE HYDROCHLORIDE [Concomitant]
     Indication: PRODUCT USED FOR UNKNOWN INDICATION
  12. DRIED THYROID [Concomitant]
     Indication: PRODUCT USED FOR UNKNOWN INDICATION
  13. CARVEDILOL [Concomitant]
     Indication: HYPERTENSION
     Route: 048
  14. CALCIUM POLYSTYRENE SULFONATE [Concomitant]
     Indication: RENAL IMPAIRMENT
     Route: 048
  15. SODIUM GUALENATE HYDRATE/L-GLUTAMINE [Concomitant]
     Indication: PRODUCT USED FOR UNKNOWN INDICATION
     Route: 048

REACTIONS (6)
  - INFLAMMATION [None]
  - ANAEMIA [None]
  - DIARRHOEA [None]
  - DRUG INEFFECTIVE [None]
  - PSORIATIC ARTHROPATHY [None]
  - PYREXIA [None]
